FAERS Safety Report 12805907 (Version 1)
Quarter: 2016Q4

REPORT INFORMATION
  Report Type: Spontaneous
  Country: US (occurrence: US)
  Receive Date: 20161003
  Receipt Date: 20161003
  Transmission Date: 20170207
  Serious: Yes (Life-Threatening, Other)
  Sender: FDA-Public Use
  Company Number: None

PATIENT
  Age: 51 Year
  Sex: Male
  Weight: 109.87 kg

DRUGS (1)
  1. GENERIC EXFORGE [Suspect]
     Active Substance: AMLODIPINE BESYLATE\VALSARTAN

REACTIONS (2)
  - Oedema peripheral [None]
  - Visual impairment [None]

NARRATIVE: CASE EVENT DATE: 20160912
